FAERS Safety Report 8894012 (Version 1)
Quarter: 2012Q4

REPORT INFORMATION
  Report Type: 
  Country: US (occurrence: US)
  Receive Date: 20121107
  Receipt Date: 20121107
  Transmission Date: 20130627
  Serious: No
  Sender: FDA-Public Use
  Company Number: US-AMGEN-USASP2011061956

PATIENT
  Age: 60 Year
  Sex: Female

DRUGS (2)
  1. ENBREL [Suspect]
     Indication: RHEUMATOID ARTHRITIS
     Dosage: 25 mg, 2 times/wk
     Dates: start: 20020101, end: 201101
  2. ENBREL [Suspect]
     Indication: PSORIASIS

REACTIONS (5)
  - Bone graft [Unknown]
  - Bunion operation [Unknown]
  - Toe operation [Unknown]
  - Rheumatoid arthritis [Unknown]
  - Psoriasis [Unknown]
